FAERS Safety Report 10843573 (Version 1)
Quarter: 2015Q1

REPORT INFORMATION
  Report Type: Report from Study
  Country: US (occurrence: US)
  Receive Date: 20150220
  Receipt Date: 20150220
  Transmission Date: 20150721
  Serious: No
  Sender: FDA-Public Use
  Company Number: US-ABBVIE-14P-163-1270953-00

PATIENT
  Age: 45 Year
  Sex: Male

DRUGS (5)
  1. HUMIRA [Suspect]
     Active Substance: ADALIMUMAB
     Dates: start: 20140712, end: 20140712
  2. TERBINAFINE [Concomitant]
     Active Substance: TERBINAFINE
     Indication: ONYCHOMYCOSIS
  3. HUMIRA [Suspect]
     Active Substance: ADALIMUMAB
     Dates: start: 20140627, end: 20140627
  4. HUMIRA [Suspect]
     Active Substance: ADALIMUMAB
     Indication: COLITIS ULCERATIVE
     Dates: start: 20140613, end: 20140613
  5. HUMIRA [Suspect]
     Active Substance: ADALIMUMAB
     Dates: start: 20140726

REACTIONS (1)
  - Inappropriate schedule of drug administration [Recovered/Resolved]

NARRATIVE: CASE EVENT DATE: 20140711
